FAERS Safety Report 24445415 (Version 1)
Quarter: 2024Q4

REPORT INFORMATION
  Report Type: Spontaneous
  Country: SE (occurrence: SE)
  Receive Date: 20241016
  Receipt Date: 20241016
  Transmission Date: 20250114
  Serious: Yes (Other)
  Sender: TEVA
  Company Number: None

PATIENT
  Age: 80 Year
  Sex: Female
  Weight: 85 kg

DRUGS (2)
  1. VALACYCLOVIR HYDROCHLORIDE [Suspect]
     Active Substance: VALACYCLOVIR HYDROCHLORIDE
     Indication: Herpes zoster
     Dosage: VALACICLOVIR ACTAVIS
     Route: 065
     Dates: start: 20240409, end: 20240418
  2. AMITRIPTYLINE [Suspect]
     Active Substance: AMITRIPTYLINE
     Indication: Neuralgia
     Dosage: 1 TABLET DAILY INCREASING THE DOSE EVERY 4 DAYS TO 4 PER DAY.
     Route: 065
     Dates: start: 20240409, end: 20240426

REACTIONS (9)
  - Tremor [Recovered/Resolved]
  - Bradyphrenia [Recovered/Resolved]
  - Speech disorder [Recovered/Resolved]
  - Balance disorder [Recovered/Resolved]
  - Dizziness [Recovered/Resolved]
  - Hallucinations, mixed [Recovered/Resolved]
  - Thinking abnormal [Recovered/Resolved]
  - Skin texture abnormal [Recovered/Resolved]
  - Hypoaesthesia oral [Recovered/Resolved]

NARRATIVE: CASE EVENT DATE: 20240401
